FAERS Safety Report 8512573-8 (Version None)
Quarter: 2012Q3

REPORT INFORMATION
  Report Type: 
  Country: None (occurrence: None)
  Receive Date: 20120716
  Receipt Date: 20120710
  Transmission Date: 20120928
  Serious: Yes (Death)
  Sender: FDA-Public Use
  Company Number: ME-ROCHE-1075241

PATIENT
  Sex: Female
  Weight: 52.8 kg

DRUGS (5)
  1. MIRCERA [Suspect]
     Indication: NEPHROGENIC ANAEMIA
     Route: 058
     Dates: start: 20120504, end: 20120504
  2. MIRCERA [Suspect]
     Indication: RENAL FAILURE CHRONIC
  3. LASIX [Concomitant]
     Indication: ASCITES
  4. NIFELAT [Concomitant]
     Indication: HYPERTENSION
     Route: 048
  5. MONOPRIL [Concomitant]
     Indication: HYPERTENSION
     Route: 048

REACTIONS (1)
  - VENA CAVA THROMBOSIS [None]
